FAERS Safety Report 9059277 (Version 3)
Quarter: 2013Q2

REPORT INFORMATION
  Report Type: Report from Study
  Country: AT (occurrence: AT)
  Receive Date: 20130211
  Receipt Date: 20130401
  Transmission Date: 20140414
  Serious: Yes (Hospitalization)
  Sender: FDA-Public Use
  Company Number: AT-ABBOTT-13P-009-1037402-00

PATIENT
  Age: 49 Year
  Sex: Male
  Weight: 70 kg

DRUGS (9)
  1. PANTOLOC [Concomitant]
     Indication: GASTROOESOPHAGEAL REFLUX DISEASE
     Dates: start: 20071015
  2. FERRETAB [Concomitant]
     Indication: IRON DEFICIENCY
     Dates: start: 20080115
  3. FOSAMAX [Concomitant]
     Indication: OSTEOPOROSIS
     Dates: start: 20090325
  4. KOMBI KALZ [Concomitant]
     Indication: OSTEOPOROSIS
     Dates: start: 20090325
  5. HUMIRA [Suspect]
     Indication: CROHN^S DISEASE
     Dosage: BASELINE
     Route: 058
     Dates: start: 20080502, end: 20080502
  6. HUMIRA [Suspect]
     Dosage: WEEK 2
     Route: 058
  7. HUMIRA [Suspect]
     Route: 058
  8. AZATHIOPRINE [Concomitant]
     Indication: CROHN^S DISEASE
     Dates: start: 200402
  9. AZATHIOPRINE [Concomitant]
     Indication: CROHN^S DISEASE

REACTIONS (1)
  - Anal stenosis [Recovered/Resolved]
